FAERS Safety Report 10150815 (Version 1)
Quarter: 2014Q2

REPORT INFORMATION
  Report Type: Spontaneous
  Country: US (occurrence: US)
  Receive Date: 20140502
  Receipt Date: 20140502
  Transmission Date: 20141212
  Serious: No
  Sender: FDA-Public Use
  Company Number: US-ASTRAZENECA-2013SE35511

PATIENT
  Age: 85 Year
  Sex: Female

DRUGS (3)
  1. PRILOSEC OTC [Suspect]
     Route: 048
  2. LIPITOR [Concomitant]
  3. BENICAR [Concomitant]

REACTIONS (3)
  - Lip discolouration [Unknown]
  - Nail discolouration [Unknown]
  - Skin discolouration [Unknown]
